FAERS Safety Report 5612059-4 (Version None)
Quarter: 2008Q1

REPORT INFORMATION
  Report Type: 
  Country: None (occurrence: None)
  Receive Date: 20080128
  Receipt Date: 20080115
  Transmission Date: 20080703
  Serious: Yes (Other)
  Sender: FDA-Public Use
  Company Number: 8028679

PATIENT
  Age: 33 Year
  Sex: Female

DRUGS (5)
  1. KEPPRA [Suspect]
     Indication: EPILEPSY
     Dosage: 250 MG 2/D PO
     Route: 048
     Dates: start: 20040101
  2. LAMICTAL [Suspect]
     Indication: EPILEPSY
     Dosage: PO
     Route: 048
  3. ASPEGIC 1000 [Concomitant]
  4. CRESTOR [Concomitant]
  5. KARDEGIC [Concomitant]

REACTIONS (2)
  - ABORTION INDUCED [None]
  - DRUG EXPOSURE DURING PREGNANCY [None]
